FAERS Safety Report 6908258-1 (Version None)
Quarter: 2010Q3

REPORT INFORMATION
  Report Type: 
  Country: None (occurrence: None)
  Receive Date: 20100805
  Receipt Date: 20100721
  Transmission Date: 20110219
  Serious: Yes (Other)
  Sender: FDA-Public Use
  Company Number: US-ROCHE-668729

PATIENT
  Age: 6 Month

DRUGS (2)
  1. PEGASYS [Suspect]
     Indication: HEPATITIS C
     Dosage: FORM: PRE-FILLED SYRINGE, ROUTE REPORTED AS SQ
     Route: 064
     Dates: start: 20091030, end: 20091109
  2. COPEGUS [Suspect]
     Indication: HEPATITIS C
     Dosage: DIVIDED DOSE
     Route: 064
     Dates: start: 20091030, end: 20091109

REACTIONS (1)
  - TRISOMY 21 [None]
